FAERS Safety Report 13704169 (Version 1)
Quarter: 2017Q2

REPORT INFORMATION
  Report Type: Report from Study
  Country: JP (occurrence: JP)
  Receive Date: 20170630
  Receipt Date: 20170630
  Transmission Date: 20170830
  Serious: Yes (Death, Other)
  Sender: FDA-Public Use
  Company Number: JP-ROCHE-1955962

PATIENT

DRUGS (5)
  1. PIRARUBICIN [Suspect]
     Active Substance: PIRARUBICIN
     Indication: DIFFUSE LARGE B-CELL LYMPHOMA
     Dosage: MEDIAN 30MG/M2, RANGE 19-39.
     Route: 065
  2. RITUXIMAB [Suspect]
     Active Substance: RITUXIMAB
     Indication: DIFFUSE LARGE B-CELL LYMPHOMA
     Route: 065
  3. PREDNISOLONE. [Suspect]
     Active Substance: PREDNISOLONE
     Indication: DIFFUSE LARGE B-CELL LYMPHOMA
     Dosage: MEDIAN 80MG/BODY, RANGE 30-100 DURING DAY1 TO 5
     Route: 065
  4. CYCLOPHOSPHAMIDE. [Suspect]
     Active Substance: CYCLOPHOSPHAMIDE
     Indication: DIFFUSE LARGE B-CELL LYMPHOMA
     Dosage: MEDIAN 455 MG/M2, RANGE 296-526 ON DAY 1.
     Route: 065
  5. VINCRISTINE [Suspect]
     Active Substance: VINCRISTINE
     Indication: DIFFUSE LARGE B-CELL LYMPHOMA
     Dosage: MEDIAN 0.8MG/M2, RANGE 0-1.0
     Route: 065

REACTIONS (8)
  - Bacteraemia [Unknown]
  - Acute myocardial infarction [Fatal]
  - Febrile neutropenia [Unknown]
  - Enterocolitis [Unknown]
  - Pneumonia [Unknown]
  - Hepatitis B reactivation [Unknown]
  - Dementia [Unknown]
  - Neutropenia [Unknown]
